FAERS Safety Report 20376695 (Version 5)
Quarter: 2022Q3

REPORT INFORMATION
  Report Type: Spontaneous
  Country: JP (occurrence: JP)
  Receive Date: 20220125
  Receipt Date: 20220914
  Transmission Date: 20221027
  Serious: Yes (Hospitalization, Other)
  Sender: FDA-Public Use
  Company Number: JP-ONO-2022JP001658

PATIENT
  Age: 75 Year
  Sex: Male
  Weight: 48 kg

DRUGS (11)
  1. BRAFTOVI [Suspect]
     Active Substance: ENCORAFENIB
     Indication: Malignant melanoma
     Dosage: 450 MG, EVERYDAY
     Route: 048
     Dates: start: 20210910, end: 20210920
  2. BRAFTOVI [Suspect]
     Active Substance: ENCORAFENIB
     Dosage: 450 MG, EVERYDAY
     Route: 048
     Dates: start: 20210930, end: 20211016
  3. BRAFTOVI [Suspect]
     Active Substance: ENCORAFENIB
     Dosage: 450 MG, EVERYDAY
     Route: 048
     Dates: start: 20211022, end: 20220225
  4. MEKTOVI [Suspect]
     Active Substance: BINIMETINIB
     Indication: Malignant melanoma
     Dosage: 45 MG, Q12H
     Route: 048
     Dates: start: 20210910, end: 20210920
  5. MEKTOVI [Suspect]
     Active Substance: BINIMETINIB
     Dosage: 45 MG, Q12H
     Route: 048
     Dates: start: 20210930, end: 20211016
  6. MEKTOVI [Suspect]
     Active Substance: BINIMETINIB
     Dosage: 45 MG, Q12H
     Route: 048
     Dates: start: 20211022, end: 20220225
  7. DISTIGMINE BROMIDE [Concomitant]
     Active Substance: DISTIGMINE BROMIDE
     Dosage: 5 MG, EVERYDAY
     Route: 048
  8. RISPERIDONE [Concomitant]
     Active Substance: RISPERIDONE
     Dosage: 2 MG, Q12H
     Route: 048
  9. DIAZEPAM [Concomitant]
     Active Substance: DIAZEPAM
     Dosage: 2 MG, Q12H
     Route: 048
  10. DIAZEPAM [Concomitant]
     Active Substance: DIAZEPAM
     Dosage: 1 MG, Q12H
     Route: 048
  11. FLUNITRAZEPAM [Concomitant]
     Active Substance: FLUNITRAZEPAM
     Dosage: 1 MG, EVERYDAY
     Route: 048

REACTIONS (9)
  - Enterocolitis [Recovered/Resolved]
  - Enteritis infectious [Unknown]
  - Colitis ischaemic [Unknown]
  - Pneumonia aspiration [Recovered/Resolved]
  - Pneumonia aspiration [Recovering/Resolving]
  - Hypokalaemia [Not Recovered/Not Resolved]
  - Serous retinal detachment [Recovering/Resolving]
  - Nausea [Unknown]
  - Pyrexia [Unknown]

NARRATIVE: CASE EVENT DATE: 20210919
